FAERS Safety Report 7499916-1 (Version None)
Quarter: 2011Q2

REPORT INFORMATION
  Report Type: 
  Country: None (occurrence: None)
  Receive Date: 20110517
  Receipt Date: 20110511
  Transmission Date: 20111010
  Serious: Yes (Death)
  Sender: FDA-Public Use
  Company Number: 2010SP054766

PATIENT
  Age: 42 Year
  Sex: Female
  Weight: 51 kg

DRUGS (14)
  1. MAGNESIUM SULFATE [Concomitant]
  2. PHENYTOIN [Concomitant]
  3. TEMODAL [Suspect]
     Indication: GLIOBLASTOMA MULTIFORME
     Dosage: 150 MG/M2; QD; PO
     Route: 048
     Dates: start: 20061109, end: 20061113
  4. TEMODAL [Suspect]
     Indication: GLIOBLASTOMA MULTIFORME
     Dosage: 150 MG/M2; QD; PO
     Route: 048
     Dates: start: 20061207, end: 20061211
  5. TEMODAL [Suspect]
     Indication: GLIOBLASTOMA MULTIFORME
     Dosage: 150 MG/M2; QD; PO
     Route: 048
     Dates: start: 20070212, end: 20070216
  6. TEMODAL [Suspect]
     Indication: GLIOBLASTOMA MULTIFORME
     Dosage: 150 MG/M2; QD; PO
     Route: 048
     Dates: start: 20061012, end: 20061016
  7. TEMODAL [Suspect]
     Indication: GLIOBLASTOMA MULTIFORME
     Dosage: 150 MG/M2; QD; PO
     Route: 048
     Dates: start: 20070311, end: 20070312
  8. TEMODAL [Suspect]
     Indication: GLIOBLASTOMA MULTIFORME
     Dosage: 150 MG/M2; QD; PO
     Route: 048
     Dates: start: 20070111, end: 20070115
  9. MAGNESIUM OXIDE [Concomitant]
  10. ZYRTEC [Concomitant]
  11. PANTOSIN [Concomitant]
  12. LOXONIN [Concomitant]
  13. ALLEGRA [Concomitant]
  14. DERMOVATE [Concomitant]

REACTIONS (4)
  - GLIOBLASTOMA MULTIFORME [None]
  - RADIATION NECROSIS [None]
  - ECZEMA [None]
  - NEOPLASM PROGRESSION [None]
